FAERS Safety Report 4263844-5 (Version None)
Quarter: 2004Q1

REPORT INFORMATION
  Report Type: 
  Country: None (occurrence: None)
  Receive Date: 20040106
  Receipt Date: 20030814
  Transmission Date: 20041129
  Serious: Yes (Life-Threatening, Hospitalization, Other)
  Sender: FDA-Public Use
  Company Number: PHNU2003DE03081

PATIENT
  Age: 53 Year
  Sex: Female

DRUGS (7)
  1. TRILEPTAL [Suspect]
     Indication: ALCOHOL WITHDRAWAL SYNDROME
     Dosage: 300 MG/D
     Route: 048
     Dates: start: 20030613, end: 20030613
  2. TRILEPTAL [Suspect]
     Dosage: 1200 MG/D
     Route: 048
     Dates: start: 20030614, end: 20030615
  3. PROMETHAZINE [Concomitant]
     Dosage: 40 MG/D
     Route: 048
     Dates: start: 20030613, end: 20030615
  4. NEXIUM [Suspect]
     Dosage: 1 DF/D
     Route: 048
     Dates: start: 20030614, end: 20030615
  5. NEUROTRAT S FORTE [Concomitant]
     Dosage: 2 DF/D
     Route: 048
     Dates: start: 20030613, end: 20030613
  6. NEUROTRAT S FORTE [Concomitant]
     Dosage: 3 DF/D
     Route: 048
     Dates: start: 20030614, end: 20030615
  7. ACETYLSALICYLIC ACID SRT [Concomitant]
     Dosage: 1 DF/D
     Route: 048
     Dates: end: 20030615

REACTIONS (34)
  - ACUTE PSYCHOSIS [None]
  - ALANINE AMINOTRANSFERASE INCREASED [None]
  - ALCOHOL WITHDRAWAL SYNDROME [None]
  - ANAEMIA [None]
  - ASPARTATE AMINOTRANSFERASE INCREASED [None]
  - BLOOD ALKALINE PHOSPHATASE INCREASED [None]
  - BLOOD CREATINE PHOSPHOKINASE INCREASED [None]
  - BLOOD POTASSIUM DECREASED [None]
  - BRAIN OEDEMA [None]
  - C-REACTIVE PROTEIN INCREASED [None]
  - COMA [None]
  - DELIRIUM [None]
  - DRUG WITHDRAWAL CONVULSIONS [None]
  - DRUG WITHDRAWAL SYNDROME [None]
  - ELECTROLYTE IMBALANCE [None]
  - GAMMA-GLUTAMYLTRANSFERASE INCREASED [None]
  - GAZE PALSY [None]
  - GRAND MAL CONVULSION [None]
  - HOARSENESS [None]
  - HYPERTONIA [None]
  - HYPONATRAEMIA [None]
  - HYPOPHOSPHATAEMIA [None]
  - LIVER DISORDER [None]
  - MENTAL DISORDER DUE TO A GENERAL MEDICAL CONDITION [None]
  - MYDRIASIS [None]
  - OPISTHOTONUS [None]
  - PLATELET COUNT DECREASED [None]
  - PNEUMONIA ASPIRATION [None]
  - POISONING [None]
  - PYREXIA [None]
  - RHABDOMYOLYSIS [None]
  - SKIN LACERATION [None]
  - STATUS EPILEPTICUS [None]
  - WHITE BLOOD CELL COUNT INCREASED [None]
